FAERS Safety Report 9868579 (Version 1)
Quarter: 2014Q1

REPORT INFORMATION
  Report Type: Spontaneous
  Country: US (occurrence: US)
  Receive Date: 20140204
  Receipt Date: 20140204
  Transmission Date: 20141002
  Serious: No
  Sender: FDA-Public Use
  Company Number: US-PFIZER INC-2014029393

PATIENT
  Age: 5 Year
  Sex: Male
  Weight: 16.78 kg

DRUGS (2)
  1. JUNIOR STRENGTH ADVIL [Suspect]
     Indication: PYREXIA
     Dosage: HALF CHEWABLE TABLET, UNK
     Dates: start: 20140127, end: 20140127
  2. FLUORIDE [Concomitant]
     Indication: PROPHYLAXIS
     Dosage: UNK

REACTIONS (2)
  - Dysgeusia [Unknown]
  - Glossodynia [Unknown]
